FAERS Safety Report 5491796-9 (Version None)
Quarter: 2007Q4

REPORT INFORMATION
  Report Type: 
  Country: None (occurrence: None)
  Receive Date: 20071018
  Receipt Date: 20071018
  Transmission Date: 20080405
  Serious: Yes (Other)
  Sender: FDA-Public Use
  Company Number: None

PATIENT
  Age: 49 Year
  Sex: Female
  Weight: 86 kg

DRUGS (2)
  1. ABRAXANE [Suspect]
     Indication: METASTATIC MALIGNANT MELANOMA
     Dosage: 286MG WEEKLY IV
     Route: 042
     Dates: start: 20071003
  2. ABRAXANE [Suspect]
     Indication: METASTATIC MALIGNANT MELANOMA
     Dosage: 286MG WEEKLY IV
     Route: 042
     Dates: start: 20071010

REACTIONS (1)
  - RASH MACULO-PAPULAR [None]
